FAERS Safety Report 8824531 (Version 3)
Quarter: 2013Q1

REPORT INFORMATION
  Report Type: Spontaneous
  Country: BR (occurrence: BR)
  Receive Date: 20121004
  Receipt Date: 20130122
  Transmission Date: 20140127
  Serious: Yes (Hospitalization, Other)
  Sender: FDA-Public Use
  Company Number: PHHY2007BR09321

PATIENT
  Age: 61 Year
  Sex: Female

DRUGS (4)
  1. DIOVAN [Suspect]
     Indication: HYPERTENSION
     Dosage: 320 MG ONCE A DAY
     Dates: end: 201204
  2. DIOVAN [Suspect]
     Dosage: 80 MG, UNK
  3. AMLODIPINE [Suspect]
     Dosage: 5 MG, UNK
  4. ASA [Suspect]

REACTIONS (8)
  - Renal impairment [Recovered/Resolved]
  - Myocardial infarction [Recovered/Resolved]
  - Infarction [Not Recovered/Not Resolved]
  - Presyncope [Recovered/Resolved]
  - Skin hyperpigmentation [Recovering/Resolving]
  - Dyspnoea [Recovering/Resolving]
  - Blood pressure diastolic decreased [Recovered/Resolved]
  - Abdominal pain upper [Not Recovered/Not Resolved]
